FAERS Safety Report 9720337 (Version 1)
Quarter: 2013Q4

REPORT INFORMATION
  Report Type: Spontaneous
  Country: US (occurrence: US)
  Receive Date: 20131129
  Receipt Date: 20131129
  Transmission Date: 20140711
  Serious: Yes (Other)
  Sender: FDA-Public Use
  Company Number: CHPA2013US017599

PATIENT
  Sex: Female
  Weight: 45.35 kg

DRUGS (5)
  1. EXCEDRIN TENSION HEADACHE [Suspect]
     Indication: MIGRAINE
     Dosage: 2 DF, UNK
     Route: 048
  2. EXCEDRIN TENSION HEADACHE [Suspect]
     Indication: OFF LABEL USE
  3. EXCEDRIN TENSION HEADACHE [Suspect]
     Indication: MIGRAINE
     Dosage: 2 DF, UNK
     Route: 048
  4. EXCEDRIN TENSION HEADACHE [Suspect]
     Indication: OFF LABEL USE
     Dosage: UNK
  5. RANITIDINE [Concomitant]
     Indication: GASTROOESOPHAGEAL REFLUX DISEASE
     Dosage: UNK

REACTIONS (3)
  - Sinus congestion [Recovered/Resolved]
  - Therapeutic response unexpected [Unknown]
  - Expired drug administered [Unknown]
